FAERS Safety Report 7771315-4 (Version None)
Quarter: 2011Q3

REPORT INFORMATION
  Report Type: 
  Country: None (occurrence: None)
  Receive Date: 20110922
  Receipt Date: 20110914
  Transmission Date: 20111222
  Serious: Yes (Hospitalization, Other)
  Sender: FDA-Public Use
  Company Number: US-MERCK-1103USA02675

PATIENT
  Age: 76 Year
  Sex: Female

DRUGS (9)
  1. FOSAMAX [Suspect]
     Route: 048
     Dates: start: 19990101, end: 20020301
  2. ASPIRIN [Concomitant]
     Route: 065
  3. FOSAMAX [Suspect]
     Indication: OSTEOPENIA
     Route: 048
     Dates: start: 20020301, end: 20090227
  4. FOSAMAX [Suspect]
     Indication: OSTEOPOROSIS
     Route: 048
     Dates: start: 20020301, end: 20090227
  5. NADOLOL [Concomitant]
     Route: 065
  6. FOSAMAX [Suspect]
     Route: 048
     Dates: start: 19990101, end: 20020301
  7. KLOR-CON [Concomitant]
     Route: 065
  8. LASIX [Concomitant]
     Route: 065
  9. HYDROCHLOROTHIAZIDE [Concomitant]
     Route: 065

REACTIONS (46)
  - ABDOMINAL WALL INFECTION [None]
  - SKIN ULCER [None]
  - POST PROCEDURAL HAEMORRHAGE [None]
  - PNEUMONIA [None]
  - FEMUR FRACTURE [None]
  - LOW TURNOVER OSTEOPATHY [None]
  - ABDOMINAL WALL HAEMATOMA [None]
  - ANAEMIA POSTOPERATIVE [None]
  - HYPOMAGNESAEMIA [None]
  - HYPOKALAEMIA [None]
  - HUMERUS FRACTURE [None]
  - HYPERTENSION [None]
  - MENTAL STATUS CHANGES [None]
  - FALL [None]
  - OSTEOARTHRITIS [None]
  - MUSCULOSKELETAL PAIN [None]
  - GASTROINTESTINAL HAEMORRHAGE [None]
  - JOINT DISLOCATION [None]
  - CANDIDIASIS [None]
  - DEPRESSION [None]
  - PULMONARY EMBOLISM [None]
  - CEREBRAL SMALL VESSEL ISCHAEMIC DISEASE [None]
  - DELIRIUM [None]
  - HYPONATRAEMIA [None]
  - HIP FRACTURE [None]
  - URINARY TRACT INFECTION [None]
  - TOXICITY TO VARIOUS AGENTS [None]
  - BURSITIS [None]
  - RADIUS FRACTURE [None]
  - PULMONARY HYPERTENSION [None]
  - SLEEP APNOEA SYNDROME [None]
  - CLOSTRIDIUM DIFFICILE COLITIS [None]
  - DEEP VEIN THROMBOSIS [None]
  - DECUBITUS ULCER [None]
  - HEAD INJURY [None]
  - IRON DEFICIENCY ANAEMIA [None]
  - HYPOTENSION [None]
  - SEPSIS [None]
  - LEUKOCYTOSIS [None]
  - CARDIAC FAILURE CONGESTIVE [None]
  - ROTATOR CUFF SYNDROME [None]
  - CHRONIC OBSTRUCTIVE PULMONARY DISEASE [None]
  - CHONDROCALCINOSIS [None]
  - TIBIA FRACTURE [None]
  - RENAL FAILURE ACUTE [None]
  - VITAMIN B12 DEFICIENCY [None]
